FAERS Safety Report 9319920 (Version 2)
Quarter: 2013Q4

REPORT INFORMATION
  Report Type: Report from Study
  Country: CA (occurrence: CA)
  Receive Date: 20130530
  Receipt Date: 20131022
  Transmission Date: 20140711
  Serious: Yes (Other)
  Sender: FDA-Public Use
  Company Number: CA-JNJFOC-20130516791

PATIENT
  Sex: Female

DRUGS (1)
  1. STELARA [Suspect]
     Indication: PSORIASIS
     Route: 058
     Dates: start: 20121009, end: 20130226

REACTIONS (4)
  - Candida infection [Unknown]
  - Aphonia [Unknown]
  - Nail discolouration [Unknown]
  - Treatment noncompliance [Unknown]
